FAERS Safety Report 25079474 (Version 2)
Quarter: 2025Q1

REPORT INFORMATION
  Report Type: Spontaneous
  Country: US (occurrence: US)
  Receive Date: 20250314
  Receipt Date: 20250317
  Transmission Date: 20250408
  Serious: Yes (Death, Other)
  Sender: PFIZER
  Company Number: US-PFIZER INC-202500055587

PATIENT
  Age: 85 Year
  Sex: Male
  Weight: 102.06 kg

DRUGS (6)
  1. IBRANCE [Suspect]
     Active Substance: PALBOCICLIB
     Indication: Breast cancer
     Route: 048
     Dates: start: 20240930
  2. GLIPIZIDE [Concomitant]
     Active Substance: GLIPIZIDE
     Indication: Blood glucose abnormal
     Dosage: 5 MG TABLET ONE DAILY (TAKING FOR YEARS)
     Route: 048
  3. LOSARTAN AND HYDROCHLOROTHIAZIDE [Concomitant]
     Active Substance: HYDROCHLOROTHIAZIDE\LOSARTAN POTASSIUM
     Indication: Blood pressure abnormal
     Dosage: 100/25 MG TABLET, ONE DAILY (BEEN ON FOR A LONG TIME)
     Route: 048
  4. METFORMIN [Concomitant]
     Active Substance: METFORMIN HYDROCHLORIDE
     Indication: Blood glucose abnormal
     Dosage: 1000 MG (TWO TABLETS OF 500 MG), TWO TABLETS TWICE A DAY (TAKING FOR YEARS)
     Route: 048
  5. CLOPIDOGREL [Concomitant]
     Active Substance: CLOPIDOGREL BISULFATE
     Indication: Cerebrovascular accident
     Dosage: 75 MG, ONE DAILY (FOR ABOUT 3 YEARS)
     Route: 048
     Dates: start: 2022
  6. FINASTERIDE [Concomitant]
     Active Substance: FINASTERIDE
     Indication: Prostatic disorder
     Dosage: 5 MG, ONCE DAILY (TAKING FOR 25 OR 30 YEARS OR MAYBE LONGER)
     Route: 048

REACTIONS (1)
  - Acute myocardial infarction [Fatal]
